FAERS Safety Report 8059076-5 (Version None)
Quarter: 2012Q1

REPORT INFORMATION
  Report Type: 
  Country: None (occurrence: None)
  Receive Date: 20120120
  Receipt Date: 20110926
  Transmission Date: 20120608
  Serious: No
  Sender: FDA-Public Use
  Company Number: US-BAUSCH-2011BL006435

PATIENT
  Age: 59 Year
  Sex: Female

DRUGS (2)
  1. ALAWAY [Suspect]
     Indication: MULTIPLE ALLERGIES
     Route: 047
     Dates: start: 20110923
  2. EQUATE ARTIFICIAL TEARS [Concomitant]

REACTIONS (1)
  - INSTILLATION SITE PAIN [None]
